FAERS Safety Report 14621991 (Version 7)
Quarter: 2018Q2

REPORT INFORMATION
  Report Type: Report from Study
  Country: DE (occurrence: DE)
  Receive Date: 20180310
  Receipt Date: 20180503
  Transmission Date: 20180711
  Serious: Yes (Death, Hospitalization, Other)
  Sender: FDA-Public Use
  Company Number: DE-BRISTOL-MYERS SQUIBB COMPANY-BMS-2017-121028

PATIENT
  Age: 69 Year
  Sex: Female
  Weight: 80 kg

DRUGS (7)
  1. IPILIMUMAB [Suspect]
     Active Substance: IPILIMUMAB
     Indication: LUNG NEOPLASM MALIGNANT
     Route: 065
  2. NIVOLUMAB [Suspect]
     Active Substance: NIVOLUMAB
     Indication: MALIGNANT MELANOMA
     Dosage: 1 DF, Q3WK
     Route: 065
     Dates: start: 20170706
  3. NIVOLUMAB [Suspect]
     Active Substance: NIVOLUMAB
     Indication: LUNG NEOPLASM MALIGNANT
     Route: 065
  4. IPILIMUMAB [Suspect]
     Active Substance: IPILIMUMAB
     Indication: MALIGNANT MELANOMA
     Dosage: 1 DF, Q3WK
     Route: 065
     Dates: start: 20170706
  5. BUSCOPAN [Concomitant]
     Active Substance: BUTYLSCOPOLAMINE BROMIDE
     Indication: ABDOMINAL PAIN UPPER
     Dosage: 10 MG, QD
     Route: 048
  6. MOVICOL [Concomitant]
     Active Substance: POLYETHYLENE GLYCOL 3350\POTASSIUM CHLORIDE\SODIUM BICARBONATE\SODIUM CHLORIDE
     Indication: CONSTIPATION
     Dosage: 1 DF, QD
     Route: 048
  7. DEXAMETHASON                       /00016001/ [Concomitant]
     Active Substance: DEXAMETHASONE
     Indication: PRODUCT USED FOR UNKNOWN INDICATION
     Dosage: 4 MG, QD
     Route: 048

REACTIONS (3)
  - Malignant neoplasm progression [Fatal]
  - Atrioventricular block complete [Unknown]
  - Myocarditis [Not Recovered/Not Resolved]

NARRATIVE: CASE EVENT DATE: 20170724
